FAERS Safety Report 18517370 (Version 1)
Quarter: 2020Q4

REPORT INFORMATION
  Report Type: Spontaneous
  Country: DE (occurrence: DE)
  Receive Date: 20201118
  Receipt Date: 20201118
  Transmission Date: 20210114
  Serious: Yes (Hospitalization, Other)
  Sender: FDA-Public Use
  Company Number: DE-PFIZER INC-2020453266

PATIENT
  Age: 95 Year
  Sex: Male
  Weight: 69 kg

DRUGS (6)
  1. LERCANIDIPINA [LERCANIDIPINE] [Concomitant]
     Dosage: 10 MG, 1X/DAY (1-0-0-0)
     Route: 048
  2. IBUPROFEN. [Suspect]
     Active Substance: IBUPROFEN
     Indication: BURSA DISORDER
     Dosage: UNKNOWN DOSE (MG), 5 X DAILY
     Route: 048
  3. ATORVASTATIN [Concomitant]
     Active Substance: ATORVASTATIN
     Dosage: 20 MG, 1X/DAY (1-0-0-0)
     Route: 048
  4. RAMIPRIL. [Concomitant]
     Active Substance: RAMIPRIL
     Dosage: 5 MG, 1X/DAY (1-0-0-0)
     Route: 048
  5. ACETYLSALICYLIC ACID [Suspect]
     Active Substance: ASPIRIN
     Dosage: 100 MG, 1X/DAY (1-0-0-0)
     Route: 048
  6. DUODART [Concomitant]
     Active Substance: DUTASTERIDE\TAMSULOSIN
     Dosage: 1 DF, 1X/DAY (1-0-0-0)
     Route: 048

REACTIONS (5)
  - Anaemia [Unknown]
  - Condition aggravated [Unknown]
  - Pallor [Unknown]
  - Haematochezia [Unknown]
  - General physical health deterioration [Unknown]
